FAERS Safety Report 17951645 (Version 2)
Quarter: 2020Q2

REPORT INFORMATION
  Report Type: Spontaneous
  Country: US (occurrence: US)
  Receive Date: 20200626
  Receipt Date: 20200630
  Transmission Date: 20200714
  Serious: Yes (Other)
  Sender: FDA-Public Use
  Company Number: US-PFIZER INC-2020176369

PATIENT
  Age: 77 Year
  Sex: Female
  Weight: 104.33 kg

DRUGS (2)
  1. BOSULIF [Suspect]
     Active Substance: BOSUTINIB MONOHYDRATE
     Dosage: 300 MG, 1X/DAY (THREE 100MG TABLETS)
     Route: 048
     Dates: start: 20200416
  2. BOSULIF [Suspect]
     Active Substance: BOSUTINIB MONOHYDRATE
     Indication: CHRONIC MYELOID LEUKAEMIA
     Dosage: 400 MG, 1X/DAY
     Route: 048
     Dates: start: 20200220

REACTIONS (12)
  - Monocyte count increased [Unknown]
  - Syncope [Unknown]
  - Red blood cell count decreased [Unknown]
  - Hypersensitivity [Unknown]
  - Haematocrit decreased [Unknown]
  - Lymphocyte percentage abnormal [Unknown]
  - Platelet count decreased [Unknown]
  - White blood cell count decreased [Unknown]
  - Contusion [Unknown]
  - Neutrophil count decreased [Unknown]
  - Skin discolouration [Unknown]
  - Haemoglobin decreased [Unknown]

NARRATIVE: CASE EVENT DATE: 2020
